FAERS Safety Report 4766460-1 (Version None)
Quarter: 2005Q3

REPORT INFORMATION
  Report Type: 
  Country: None (occurrence: None)
  Receive Date: 20050912
  Receipt Date: 20050902
  Transmission Date: 20060218
  Serious: Yes (Hospitalization, Other)
  Sender: FDA-Public Use
  Company Number: US-JNJFOC-20050901270

PATIENT
  Age: 46 Year
  Sex: Female
  Weight: 85.73 kg

DRUGS (19)
  1. RISPERDAL [Suspect]
     Indication: SCHIZOPHRENIA
     Dosage: 1 TO 3 MG DAILY
     Route: 048
  2. GLUCOPHAGE [Concomitant]
  3. ALBUTEROL [Concomitant]
     Indication: ASTHMA
  4. ADVAIR DISKUS 100/50 [Concomitant]
  5. ADVAIR DISKUS 100/50 [Concomitant]
     Indication: ASTHMA
  6. LORCET-HD [Concomitant]
     Indication: FIBROMYALGIA
  7. SOMA [Concomitant]
     Indication: PAIN
  8. TYLENOL [Concomitant]
  9. TYLENOL [Concomitant]
  10. TYLENOL [Concomitant]
  11. TYLENOL [Concomitant]
  12. TYLENOL [Concomitant]
  13. TYLENOL [Concomitant]
  14. TYLENOL [Concomitant]
  15. TYLENOL [Concomitant]
  16. TYLENOL [Concomitant]
  17. TYLENOL [Concomitant]
  18. TYLENOL [Concomitant]
     Dosage: 2 AS NECESSARY
  19. SEROQUEL [Concomitant]
     Indication: SLEEP DISORDER THERAPY

REACTIONS (6)
  - DIABETES MELLITUS NON-INSULIN-DEPENDENT [None]
  - GASTRIC ULCER [None]
  - HELICOBACTER INFECTION [None]
  - INCREASED APPETITE [None]
  - NAUSEA [None]
  - WEIGHT INCREASED [None]
